FAERS Safety Report 23544528 (Version 1)
Quarter: 2024Q1

REPORT INFORMATION
  Report Type: Spontaneous
  Country: FR (occurrence: None)
  Receive Date: 20240220
  Receipt Date: 20240220
  Transmission Date: 20240410
  Serious: Yes (Life-Threatening)
  Sender: FDA-Public Use
  Company Number: 2024A038984

PATIENT
  Age: 53 Year
  Sex: Female

DRUGS (6)
  1. TICAGRELOR [Suspect]
     Active Substance: TICAGRELOR
     Route: 048
     Dates: start: 20230905, end: 20230905
  2. ISOSORBIDE [Suspect]
     Active Substance: ISOSORBIDE
     Dates: start: 20230905, end: 20230905
  3. HEPARIN [Suspect]
     Active Substance: HEPARIN SODIUM
     Indication: Thrombosis prophylaxis
     Dosage: 5000.0IU UNKNOWN
     Route: 030
     Dates: start: 20230905, end: 20230905
  4. IOMERON [Suspect]
     Active Substance: IOMEPROL
     Dosage: 1.0DF UNKNOWN
     Route: 042
     Dates: start: 20230905, end: 20230905
  5. MIDAZOLAM [Suspect]
     Active Substance: MIDAZOLAM
     Dosage: 2.0MG UNKNOWN
     Route: 048
     Dates: start: 20230905, end: 20230905
  6. ASPIRIN DL-LYSINE [Suspect]
     Active Substance: ASPIRIN DL-LYSINE
     Indication: Angiocardiogram
     Dosage: 250.0MG UNKNOWN
     Route: 048
     Dates: start: 20230905, end: 20230905

REACTIONS (4)
  - Dyspnoea [Recovered/Resolved]
  - Face oedema [Recovered/Resolved]
  - Dysphagia [Recovered/Resolved]
  - Pruritus [Recovered/Resolved]

NARRATIVE: CASE EVENT DATE: 20230905
